FAERS Safety Report 18616942 (Version 2)
Quarter: 2020Q4

REPORT INFORMATION
  Report Type: Spontaneous
  Country: US (occurrence: US)
  Receive Date: 20201215
  Receipt Date: 20201222
  Transmission Date: 20210114
  Serious: No
  Sender: FDA-Public Use
  Company Number: US-ALXN-A202018151

PATIENT

DRUGS (2)
  1. STRENSIQ [Suspect]
     Active Substance: ASFOTASE ALFA
     Indication: HYPOPHOSPHATASIA
     Dosage: UNK
     Route: 065
     Dates: start: 2020
  2. STRENSIQ [Suspect]
     Active Substance: ASFOTASE ALFA
     Dosage: 3.5 MG/KG, TIW
     Route: 065

REACTIONS (1)
  - Drug ineffective [Recovering/Resolving]
